FAERS Safety Report 12161367 (Version 1)
Quarter: 2016Q1

REPORT INFORMATION
  Report Type: Other
  Country: US (occurrence: US)
  Receive Date: 20160308
  Receipt Date: 20160308
  Transmission Date: 20160526
  Serious: Yes (Other)
  Sender: FDA-Public Use
  Company Number: US-GUTHY-RENKER LLC-1048832

PATIENT
  Age: 33 Year
  Sex: Female

DRUGS (2)
  1. PROACTIVPLUS SKIN SMOOTHING EXFOLIATOR [Suspect]
     Active Substance: BENZOYL PEROXIDE
     Indication: ACNE
     Route: 061
     Dates: start: 20160208, end: 20160217
  2. BENADRYL [Concomitant]
     Active Substance: DIPHENHYDRAMINE HYDROCHLORIDE

REACTIONS (2)
  - Urticaria [None]
  - Lip oedema [Recovered/Resolved]

NARRATIVE: CASE EVENT DATE: 20160217
